FAERS Safety Report 7920283-0 (Version None)
Quarter: 2011Q4

REPORT INFORMATION
  Report Type: 
  Country: None (occurrence: None)
  Receive Date: 20111115
  Receipt Date: 20111104
  Transmission Date: 20120403
  Serious: Yes (Other)
  Sender: FDA-Public Use
  Company Number: DSA_48117_2011

PATIENT
  Age: 49 Year
  Sex: Female

DRUGS (4)
  1. AMBROXOL [Concomitant]
  2. LITHIUM CARBONATE [Concomitant]
  3. BUDESONIDE [Concomitant]
  4. BUPROPION HYDROCHLORIDE [Suspect]
     Indication: DEPRESSION
     Dosage: 150 MG QD ORAL
     Route: 048
     Dates: start: 20110101

REACTIONS (8)
  - RESTLESSNESS [None]
  - RESPIRATORY DISTRESS [None]
  - COUGH [None]
  - DECREASED APPETITE [None]
  - SPEECH DISORDER [None]
  - WEIGHT DECREASED [None]
  - DYSPHONIA [None]
  - HEADACHE [None]
